FAERS Safety Report 9775492 (Version 1)
Quarter: 2013Q4

REPORT INFORMATION
  Report Type: Spontaneous
  Country: US (occurrence: US)
  Receive Date: 20131220
  Receipt Date: 20131220
  Transmission Date: 20140711
  Serious: No
  Sender: FDA-Public Use
  Company Number: US-GALDERMA-US13003563

PATIENT
  Age: 51 Year
  Sex: Male

DRUGS (6)
  1. MIRVASO (BRIMONIDINE) TOPICAL GEL, 0.33% [Suspect]
     Indication: ROSACEA
     Dosage: 0.33%
     Route: 061
     Dates: start: 201310
  2. CERAVE FOAMING CLEANSER [Concomitant]
     Indication: THERAPEUTIC SKIN CARE TOPICAL
     Route: 061
  3. CERAVE PM MOISTURIZER [Concomitant]
     Indication: DRY SKIN PROPHYLAXIS
     Route: 061
  4. TRETINOIN TOPICAL CREAM 0.025% [Concomitant]
     Dosage: 0.025%
     Route: 061
  5. CETAPHIL DERMACONTROL MOISTURIZER SPF30 [Concomitant]
     Indication: DRY SKIN PROPHYLAXIS
     Route: 061
  6. CETAPHIL DERMACONTROL MOISTURIZER SPF30 [Concomitant]
     Indication: PROPHYLAXIS AGAINST SOLAR RADIATION

REACTIONS (8)
  - Rebound effect [Recovering/Resolving]
  - Condition aggravated [Recovering/Resolving]
  - Dry skin [Recovering/Resolving]
  - Skin discomfort [Recovering/Resolving]
  - Skin burning sensation [Recovering/Resolving]
  - Erythema [Recovering/Resolving]
  - Flushing [Recovering/Resolving]
  - Application site discolouration [None]
